FAERS Safety Report 7937570-2 (Version None)
Quarter: 2011Q4

REPORT INFORMATION
  Report Type: 
  Country: None (occurrence: None)
  Receive Date: 20111123
  Receipt Date: 20111118
  Transmission Date: 20120403
  Serious: Yes (Life-Threatening, Hospitalization, Other)
  Sender: FDA-Public Use
  Company Number: US-UCBSA-042839

PATIENT
  Age: 23 Year
  Sex: Male
  Weight: 63.5 kg

DRUGS (13)
  1. MESALAMINE [Concomitant]
     Indication: CROHN'S DISEASE
     Dates: start: 20010921, end: 20071101
  2. CIMZIA [Suspect]
     Route: 058
     Dates: start: 20100407, end: 20100506
  3. CIMZIA [Suspect]
     Route: 058
     Dates: start: 20091112, end: 20091212
  4. MESALAMINE [Concomitant]
     Dates: start: 20071220, end: 20070101
  5. CIMZIA [Suspect]
     Indication: CROHN'S DISEASE
     Route: 058
     Dates: start: 20100826
  6. CIMZIA [Suspect]
     Route: 058
     Dates: start: 20100118, end: 20100225
  7. CIMZIA [Suspect]
     Route: 058
     Dates: start: 20100629, end: 20100727
  8. CIMZIA [Suspect]
     Route: 058
     Dates: start: 20090527, end: 20090630
  9. CIMZIA [Suspect]
     Route: 058
     Dates: start: 20090727, end: 20090820
  10. CIMZIA [Suspect]
     Route: 058
     Dates: start: 20090429
  11. CIMZIA [Suspect]
     Route: 058
     Dates: start: 20090424
  12. MESALAMINE [Concomitant]
     Dosage: UNKNOWN DOSE
     Dates: start: 20090422
  13. CIMZIA [Suspect]
     Route: 058
     Dates: start: 20090917, end: 20090101

REACTIONS (3)
  - SEPTIC SHOCK [None]
  - INTESTINAL RESECTION [None]
  - THROMBOSIS [None]
